FAERS Safety Report 9949703 (Version 1)
Quarter: 2014Q1

REPORT INFORMATION
  Report Type: Report from Study
  Country: US (occurrence: US)
  Receive Date: 20140304
  Receipt Date: 20140304
  Transmission Date: 20141002
  Serious: No
  Sender: FDA-Public Use
  Company Number: US-ABBVIE-13P-163-1069012-00

PATIENT
  Sex: Female
  Weight: 87.17 kg

DRUGS (2)
  1. HUMIRA [Suspect]
     Indication: CROHN^S DISEASE
     Dates: start: 201205, end: 201211
  2. HUMIRA [Suspect]
     Dates: start: 20130221

REACTIONS (1)
  - Headache [Recovered/Resolved]
